FAERS Safety Report 12284220 (Version 4)
Quarter: 2018Q2

REPORT INFORMATION
  Report Type: Spontaneous
  Country: US (occurrence: US)
  Receive Date: 20160420
  Receipt Date: 20180514
  Transmission Date: 20180711
  Serious: Yes (Hospitalization)
  Sender: FDA-Public Use
  Company Number: US-ASTRAZENECA-2016SE40696

PATIENT
  Age: 784 Month
  Sex: Male
  Weight: 83.9 kg

DRUGS (2)
  1. TUDORZA PRESSAIR [Suspect]
     Active Substance: ACLIDINIUM BROMIDE
     Indication: BRONCHITIS CHRONIC
     Dosage: 400MCG ONE PUFF TWICE DAILY
     Route: 055
     Dates: start: 2013
  2. TUDORZA PRESSAIR [Suspect]
     Active Substance: ACLIDINIUM BROMIDE
     Indication: CHRONIC OBSTRUCTIVE PULMONARY DISEASE
     Dosage: 400MCG ONE PUFF TWICE DAILY
     Route: 055
     Dates: start: 2013

REACTIONS (10)
  - Pneumonia [Recovered/Resolved with Sequelae]
  - Fatigue [Not Recovered/Not Resolved]
  - Breath sounds abnormal [Unknown]
  - Intentional product misuse [Not Recovered/Not Resolved]
  - Device defective [Unknown]
  - Drug dose omission [Unknown]
  - Dyspnoea [Recovered/Resolved]
  - Palpitations [Recovered/Resolved]
  - Anxiety [Unknown]
  - Incorrect dose administered [Recovered/Resolved]

NARRATIVE: CASE EVENT DATE: 201602
